FAERS Safety Report 4443006-9 (Version None)
Quarter: 2004Q3

REPORT INFORMATION
  Report Type: 
  Country: None (occurrence: None)
  Receive Date: 20040903
  Receipt Date: 20040526
  Transmission Date: 20050211
  Serious: Yes (Other)
  Sender: FDA-Public Use
  Company Number: 2004UW11051

PATIENT
  Age: 65 Year
  Sex: Female
  Weight: 56.6996 kg

DRUGS (6)
  1. CRESTOR [Suspect]
     Indication: BLOOD CHOLESTEROL INCREASED
     Dosage: 10 MG PO
     Route: 048
     Dates: start: 20040101
  2. LOTREL [Concomitant]
  3. PEPCID [Concomitant]
  4. ASPIRIN [Concomitant]
  5. DILANTIN [Concomitant]
  6. ZOCOR [Concomitant]

REACTIONS (3)
  - DEPRESSED MOOD [None]
  - NERVOUSNESS [None]
  - TREMOR [None]
